FAERS Safety Report 9668632 (Version 3)
Quarter: 2014Q1

REPORT INFORMATION
  Report Type: Spontaneous
  Country: GB (occurrence: GB)
  Receive Date: 20131105
  Receipt Date: 20140114
  Transmission Date: 20141002
  Serious: Yes (Other)
  Sender: FDA-Public Use
  Company Number: GB-ROCHE-1299446

PATIENT
  Sex: Female
  Weight: 83 kg

DRUGS (9)
  1. XOLAIR [Suspect]
     Indication: ASTHMA
     Route: 058
     Dates: start: 20130912, end: 20131107
  2. XOLAIR [Suspect]
     Indication: PSYCHOTIC DISORDER
  3. XOLAIR [Suspect]
     Indication: RASH
  4. SERETIDE [Concomitant]
  5. QVAR [Concomitant]
  6. PREDNISOLONE [Concomitant]
  7. TIOTROPIUM [Concomitant]
  8. MONTELUKAST [Concomitant]
  9. ALENDRONATE [Concomitant]

REACTIONS (1)
  - Anaphylactic reaction [Recovered/Resolved]
